FAERS Safety Report 5339400-4 (Version None)
Quarter: 2007Q2

REPORT INFORMATION
  Report Type: 
  Country: None (occurrence: None)
  Receive Date: 20070322
  Receipt Date: 20061023
  Transmission Date: 20071010
  Serious: Yes (Hospitalization)
  Sender: FDA-Public Use
  Company Number: 200613986BCC

PATIENT
  Age: 82 Year
  Sex: Female
  Weight: 81.6475 kg

DRUGS (1)
  1. ALEVE [Suspect]
     Indication: ARTHRALGIA
     Dosage: 440 MG, Q4HR, ORAL
     Route: 048

REACTIONS (2)
  - GASTRIC HAEMORRHAGE [None]
  - STOMACH DISCOMFORT [None]
